FAERS Safety Report 24722613 (Version 1)
Quarter: 2024Q4

REPORT INFORMATION
  Report Type: Spontaneous
  Country: US (occurrence: None)
  Receive Date: 20241211
  Receipt Date: 20241211
  Transmission Date: 20250114
  Serious: Yes (Disabling)
  Sender: Public
  Company Number: None

PATIENT
  Age: 76 Year
  Sex: Male
  Weight: 84.82 kg

DRUGS (12)
  1. JARDIANCE [Suspect]
     Active Substance: EMPAGLIFLOZIN
     Indication: Cardiac failure
     Dosage: FREQUENCY : DAILY;?
     Route: 048
     Dates: start: 20231111
  2. AMIODARONE HYDROCHLORIDE [Concomitant]
     Active Substance: AMIODARONE HYDROCHLORIDE
  3. MEXILENTINE HCL [Concomitant]
  4. VASOTEC [Concomitant]
     Active Substance: ENALAPRIL MALEATE
  5. METOPROLOL SUCCINATE [Concomitant]
     Active Substance: METOPROLOL SUCCINATE
     Dosage: FREQUENCY : DAILY;?
  6. LASIX [Concomitant]
     Active Substance: FUROSEMIDE
  7. KLOR-CON M20 [Concomitant]
     Active Substance: POTASSIUM CHLORIDE
  8. JARDIANCE [Concomitant]
     Active Substance: EMPAGLIFLOZIN
  9. LIPITOR [Concomitant]
     Active Substance: ATORVASTATIN CALCIUM
  10. ZETIA [Concomitant]
     Active Substance: EZETIMIBE
  11. NITROSTAT [Concomitant]
     Active Substance: NITROGLYCERIN
  12. ASPIRIN [Concomitant]
     Active Substance: ASPIRIN

REACTIONS (6)
  - Glycosylated haemoglobin increased [None]
  - Blood urea increased [None]
  - Chronic kidney disease [None]
  - Dental caries [None]
  - Dry eye [None]
  - Pruritus [None]

NARRATIVE: CASE EVENT DATE: 20240810
